FAERS Safety Report 20057042 (Version 1)
Quarter: 2021Q4

REPORT INFORMATION
  Report Type: Spontaneous
  Country: IT (occurrence: IT)
  Receive Date: 20211111
  Receipt Date: 20211111
  Transmission Date: 20220303
  Serious: Yes (Death, Life-Threatening, Hospitalization, Other)
  Sender: FDA-Public Use
  Company Number: None

PATIENT
  Age: 32 Year
  Sex: Female

DRUGS (3)
  1. AZATHIOPRINE [Suspect]
     Active Substance: AZATHIOPRINE
     Indication: Urticarial vasculitis
     Dosage: UNK
     Route: 065
  2. MYCOPHENOLATE MOFETIL [Suspect]
     Active Substance: MYCOPHENOLATE MOFETIL
     Indication: Urticarial vasculitis
     Dosage: UNK
     Route: 065
  3. PREDNISONE [Suspect]
     Active Substance: PREDNISONE
     Indication: Urticarial vasculitis
     Dosage: 12.5 MILLIGRAM, PER DAY (AS MAINTENANCE DOSE)
     Route: 065

REACTIONS (13)
  - Cerebral haemorrhage [Fatal]
  - Coronary artery embolism [Fatal]
  - Brain oedema [Fatal]
  - Cerebral artery embolism [Fatal]
  - Pyelonephritis [Fatal]
  - Listeriosis [Fatal]
  - Infective aneurysm [Fatal]
  - Infective aortitis [Fatal]
  - Septic embolus [Fatal]
  - Systemic infection [Fatal]
  - Endocarditis [Fatal]
  - Condition aggravated [Fatal]
  - Off label use [Unknown]
